FAERS Safety Report 9277421 (Version 1)
Quarter: 2013Q2

REPORT INFORMATION
  Report Type: Report from Study
  Country: GR (occurrence: GR)
  Receive Date: 20130508
  Receipt Date: 20130508
  Transmission Date: 20140414
  Serious: Yes (Other)
  Sender: FDA-Public Use
  Company Number: GR-GENZYME-CAMP-1002903

PATIENT
  Age: 51 Year
  Sex: 0

DRUGS (1)
  1. CAMPATH [Suspect]
     Indication: PROLYMPHOCYTIC LEUKAEMIA
     Dosage: 30 MG, 3X/W X 3 WEEKS FOR 3 MONTHS
     Route: 065

REACTIONS (2)
  - Lung infiltration [Not Recovered/Not Resolved]
  - Hypoxia [Not Recovered/Not Resolved]
